FAERS Safety Report 7311088-2 (Version None)
Quarter: 2011Q1

REPORT INFORMATION
  Report Type: 
  Country: None (occurrence: None)
  Receive Date: 20110224
  Receipt Date: 20110215
  Transmission Date: 20110831
  Serious: Yes (Other)
  Sender: FDA-Public Use
  Company Number: US-ROCHE-734381

PATIENT
  Sex: Female
  Weight: 59.9 kg

DRUGS (3)
  1. AMNESTEEM [Suspect]
     Route: 065
     Dates: start: 20080307
  2. SOTRET [Suspect]
     Route: 065
     Dates: start: 20080611
  3. ACCUTANE [Suspect]
     Indication: ACNE
     Route: 065
     Dates: start: 20080307, end: 20080907

REACTIONS (7)
  - IRRITABLE BOWEL SYNDROME [None]
  - COLITIS ULCERATIVE [None]
  - NAUSEA [None]
  - INFLAMMATORY BOWEL DISEASE [None]
  - INTESTINAL OBSTRUCTION [None]
  - ABDOMINAL PAIN [None]
  - RECTAL HAEMORRHAGE [None]
